FAERS Safety Report 7606970-2 (Version None)
Quarter: 2011Q3

REPORT INFORMATION
  Report Type: 
  Country: None (occurrence: None)
  Receive Date: 20110713
  Receipt Date: 20110711
  Transmission Date: 20111222
  Serious: Yes (Death)
  Sender: FDA-Public Use
  Company Number: FR-BRISTOL-MYERS SQUIBB COMPANY-15853401

PATIENT
  Age: 3 Decade
  Sex: Male
  Weight: 70 kg

DRUGS (5)
  1. ABILIFY [Suspect]
     Indication: PSYCHOTIC DISORDER
  2. ZOLOFT [Suspect]
  3. TERCIAN [Suspect]
  4. VALIUM [Suspect]
  5. TRIMEPRAZINE TARTRATE [Suspect]

REACTIONS (2)
  - DEATH [None]
  - PHOTOSENSITIVITY REACTION [None]
